FAERS Safety Report 5012359-5 (Version None)
Quarter: 2006Q2

REPORT INFORMATION
  Report Type: 
  Country: None (occurrence: None)
  Receive Date: 20060525
  Receipt Date: 20060525
  Transmission Date: 20061013
  Serious: Yes (Hospitalization)
  Sender: FDA-Public Use
  Company Number: None

PATIENT
  Age: 57 Year
  Sex: Female
  Weight: 53 kg

DRUGS (9)
  1. TEMOZOLOMIDE   N/A       SCHERING-PLOUGH [Suspect]
     Indication: GLIOMA
     Dosage: 75 MG/M2    QD X 49 DAY CYCLE   PO
     Route: 048
     Dates: start: 20050504, end: 20060424
  2. DILANTIN [Concomitant]
  3. KEPPRA [Concomitant]
  4. KLONOPIN [Concomitant]
  5. PRILOSEC [Concomitant]
  6. ZOFRAN [Concomitant]
  7. BACTRIM DS [Concomitant]
  8. TRILEPTAL [Concomitant]
  9. DECADRON [Concomitant]

REACTIONS (4)
  - FALL [None]
  - HEMIPARESIS [None]
  - HYPOAESTHESIA [None]
  - MALIGNANT NEOPLASM PROGRESSION [None]
